FAERS Safety Report 23651902 (Version 3)
Quarter: 2024Q2

REPORT INFORMATION
  Report Type: Spontaneous
  Country: JP (occurrence: JP)
  Receive Date: 20240320
  Receipt Date: 20240426
  Transmission Date: 20240716
  Serious: Yes (Death, Hospitalization, Other)
  Sender: FDA-Public Use
  Company Number: JP-UNITED THERAPEUTICS-UNT-2023-028056

PATIENT
  Age: 75 Year
  Sex: Male
  Weight: 60.8 kg

DRUGS (9)
  1. TYVASO [Suspect]
     Active Substance: TREPROSTINIL
     Indication: Pulmonary arterial hypertension
     Dosage: UNK
     Dates: start: 20230906, end: 202309
  2. TYVASO [Suspect]
     Active Substance: TREPROSTINIL
     Indication: Chronic obstructive pulmonary disease
     Dosage: 18 ?G, QID
     Dates: start: 20230907, end: 20230925
  3. TYVASO [Suspect]
     Active Substance: TREPROSTINIL
     Dosage: 36 ?G, QID
     Dates: start: 20230926, end: 20231010
  4. TYVASO [Suspect]
     Active Substance: TREPROSTINIL
     Dosage: 54 ?G, QID
     Dates: start: 20231011, end: 20240307
  5. OFEV [Concomitant]
     Active Substance: NINTEDANIB
     Indication: Interstitial lung disease
     Dosage: 200 MG, QD
     Route: 065
     Dates: start: 20210913
  6. OLODATEROL HYDROCHLORIDE\TIOTROPIUM BROMIDE MONOHYDRATE [Concomitant]
     Active Substance: OLODATEROL HYDROCHLORIDE\TIOTROPIUM BROMIDE MONOHYDRATE
     Indication: Product used for unknown indication
     Dosage: UNK
     Route: 065
  7. BISOPROLOL [Concomitant]
     Active Substance: BISOPROLOL\BISOPROLOL FUMARATE
     Indication: Atrial fibrillation
     Dosage: 2 MG, QD
     Route: 065
     Dates: start: 20240115
  8. AZOSEMIDE [Concomitant]
     Active Substance: AZOSEMIDE
     Indication: Cardiac failure
     Dosage: 60 MG, QD
     Route: 065
     Dates: start: 20240118
  9. ANORO ELLIPTA [Concomitant]
     Active Substance: UMECLIDINIUM BROMIDE\VILANTEROL TRIFENATATE
     Indication: Chronic obstructive pulmonary disease
     Dosage: UNK (1DF/DAY)
     Route: 065
     Dates: start: 20220728

REACTIONS (9)
  - Cardio-respiratory arrest [Fatal]
  - Pulmonary hypertension [Fatal]
  - Choking sensation [Unknown]
  - Headache [Unknown]
  - Fatigue [Unknown]
  - Brain natriuretic peptide increased [Unknown]
  - Pleural effusion [Unknown]
  - Chronic obstructive pulmonary disease [Unknown]
  - Off label use [Unknown]

NARRATIVE: CASE EVENT DATE: 20230906
